FAERS Safety Report 7818059-8 (Version None)
Quarter: 2011Q4

REPORT INFORMATION
  Report Type: 
  Country: None (occurrence: None)
  Receive Date: 20111017
  Receipt Date: 20111010
  Transmission Date: 20120403
  Serious: Yes (Other)
  Sender: FDA-Public Use
  Company Number: BR-PFIZER INC-2011242131

PATIENT
  Sex: Female

DRUGS (7)
  1. SERTRALINE HYDROCHLORIDE [Concomitant]
     Dosage: ONE TABLET, ONCE DAILY
     Dates: start: 20110601
  2. LEXOTAN [Suspect]
     Dosage: 3MG DAILY
  3. VYTORIN [Concomitant]
     Indication: BLOOD CHOLESTEROL INCREASED
     Dosage: UNK
  4. PRISTIQ [Suspect]
     Dosage: 50 MG (ONE TABLET), 1X/DAY
     Route: 048
     Dates: start: 20111004
  5. AMLODIPINE [Concomitant]
     Indication: HYPERTENSION
     Dosage: ONE TABLET, OCNE DAILY
     Dates: start: 20110801
  6. DIOVAN [Concomitant]
     Indication: HYPERTENSION
     Dosage: UNK
  7. SYNTHROID [Concomitant]
     Indication: THYROIDECTOMY
     Dosage: UNK
     Dates: start: 20100101

REACTIONS (2)
  - HEAD DISCOMFORT [None]
  - PNEUMONIA [None]
